FAERS Safety Report 5701563-6 (Version None)
Quarter: 2008Q2

REPORT INFORMATION
  Report Type: 
  Country: None (occurrence: None)
  Receive Date: 20080408
  Receipt Date: 20080331
  Transmission Date: 20081010
  Serious: Yes (Other)
  Sender: FDA-Public Use
  Company Number: CHPA2008US05752

PATIENT
  Age: 8 Month
  Sex: Male

DRUGS (2)
  1. TRIAMINIC INFANT DECONGESTANT COUGH (NCH)(DEXTROMETHORPHAN HYDROBROMID [Suspect]
     Indication: COUGH
     Dosage: 1 DF, PRN, ORAL
     Route: 048
  2. ANTACIDS (NO INGREDIENTS/SUBSTANCES) [Concomitant]

REACTIONS (1)
  - CONVULSION [None]
